FAERS Safety Report 21199511 (Version 1)
Quarter: 2022Q3

REPORT INFORMATION
  Report Type: Spontaneous
  Country: US (occurrence: US)
  Receive Date: 20220811
  Receipt Date: 20220811
  Transmission Date: 20221027
  Serious: No
  Sender: FDA-Public Use
  Company Number: US-TEVA-2022-US-2059117

PATIENT
  Sex: Female

DRUGS (1)
  1. DIAZEPAM [Suspect]
     Active Substance: DIAZEPAM
     Indication: Product used for unknown indication
     Route: 065

REACTIONS (5)
  - Wrong technique in product usage process [Unknown]
  - Therapeutic product effect delayed [Unknown]
  - Product taste abnormal [Unknown]
  - Product physical issue [Unknown]
  - Poor quality product administered [Unknown]
